FAERS Safety Report 5296267-0 (Version None)
Quarter: 2007Q2

REPORT INFORMATION
  Report Type: 
  Country: None (occurrence: None)
  Receive Date: 20070413
  Receipt Date: 20070405
  Transmission Date: 20071010
  Serious: Yes (Death)
  Sender: FDA-Public Use
  Company Number: US-JNJFOC-20070401636

PATIENT
  Age: 6 Month
  Sex: Female

DRUGS (4)
  1. ACETAMINOPHEN/PSEUDOEPHEDRINE [Suspect]
     Indication: COUGH
  2. ACETAMINOPHEN/PSEUDOEPHEDRINE [Suspect]
     Indication: NASOPHARYNGITIS
  3. PSEUDOEPHEDRINE/CARBINOXAMINE/DEXTROMETHORPHAN [Suspect]
     Indication: COUGH
  4. PSEUDOEPHEDRINE/CARBINOXAMINE/DEXTROMETHORPHAN [Suspect]
     Indication: NASOPHARYNGITIS

REACTIONS (5)
  - BRONCHOPNEUMONIA [None]
  - DRUG ADMINISTRATION ERROR [None]
  - DRUG TOXICITY [None]
  - EMPYEMA [None]
  - RESPIRATORY TRACT INFECTION [None]
